FAERS Safety Report 11818321 (Version 3)
Quarter: 2018Q1

REPORT INFORMATION
  Report Type: Spontaneous
  Country: US (occurrence: US)
  Receive Date: 20151210
  Receipt Date: 20180118
  Transmission Date: 20180508
  Serious: No
  Sender: FDA-Public Use
  Company Number: US-JNJFOC-20151117983

PATIENT
  Age: 17 Year
  Sex: Male

DRUGS (1)
  1. RISPERDAL [Suspect]
     Active Substance: RISPERIDONE
     Indication: POST-TRAUMATIC STRESS DISORDER
     Route: 048
     Dates: start: 201111, end: 201308

REACTIONS (3)
  - Product use in unapproved indication [Unknown]
  - Breast enlargement [Unknown]
  - Off label use [Unknown]

NARRATIVE: CASE EVENT DATE: 201111
